FAERS Safety Report 20197192 (Version 8)
Quarter: 2024Q3

REPORT INFORMATION
  Report Type: Report from Study
  Country: DE (occurrence: DE)
  Receive Date: 20211217
  Receipt Date: 20240723
  Transmission Date: 20241016
  Serious: Yes (Hospitalization, Other)
  Sender: ROCHE
  Company Number: DE-ROCHE-2425567

PATIENT
  Age: 46 Year
  Sex: Female

DRUGS (36)
  1. OCREVUS [Suspect]
     Active Substance: OCRELIZUMAB
     Indication: Relapsing-remitting multiple sclerosis
     Route: 042
     Dates: start: 20190114, end: 20220214
  2. OCREVUS [Suspect]
     Active Substance: OCRELIZUMAB
     Route: 042
     Dates: start: 20190128
  3. OCREVUS [Suspect]
     Active Substance: OCRELIZUMAB
     Route: 042
     Dates: start: 20190826
  4. OCREVUS [Suspect]
     Active Substance: OCRELIZUMAB
     Route: 042
     Dates: start: 20200302
  5. OCREVUS [Suspect]
     Active Substance: OCRELIZUMAB
     Route: 042
     Dates: start: 20201012
  6. OCREVUS [Suspect]
     Active Substance: OCRELIZUMAB
     Route: 042
     Dates: start: 20210721
  7. OCREVUS [Suspect]
     Active Substance: OCRELIZUMAB
     Route: 042
     Dates: start: 20220214, end: 20220214
  8. CORTISONE [Suspect]
     Active Substance: CORTISONE
     Indication: Product used for unknown indication
     Dosage: 80-90MG
     Route: 037
     Dates: end: 20200107
  9. CORTISONE [Suspect]
     Active Substance: CORTISONE
     Indication: Product used for unknown indication
     Route: 048
  10. COMIRNATY (TOZINAMERAN) [Suspect]
     Active Substance: TOZINAMERAN
     Indication: COVID-19 prophylaxis
     Dosage: FIRST VACCINE
     Route: 065
  11. COMIRNATY (TOZINAMERAN) [Suspect]
     Active Substance: TOZINAMERAN
     Dosage: SECOND VACCINE
     Route: 065
     Dates: start: 20210610
  12. SPIKEVAX (ELASOMERAN) [Suspect]
     Active Substance: ELASOMERAN
     Indication: COVID-19 prophylaxis
     Dosage: BOOSTER GIVEN ON 08/JAN/2022
     Route: 065
  13. BUPROPION HYDROCHLORIDE [Concomitant]
     Active Substance: BUPROPION HYDROCHLORIDE
  14. BUPROPION HYDROCHLORIDE [Concomitant]
     Active Substance: BUPROPION HYDROCHLORIDE
  15. OPIPRAMOL [Concomitant]
     Active Substance: OPIPRAMOL
  16. PRAMIPEXOLE [Concomitant]
     Active Substance: PRAMIPEXOLE\PRAMIPEXOLE DIHYDROCHLORIDE
  17. PRAMIPEXOLE [Concomitant]
     Active Substance: PRAMIPEXOLE\PRAMIPEXOLE DIHYDROCHLORIDE
  18. TIZANIDINE [Concomitant]
     Active Substance: TIZANIDINE
     Dosage: 1-2 DF, 1-1-2
  19. CHOLECALCIFEROL [Concomitant]
     Active Substance: CHOLECALCIFEROL
  20. PANTOPRAZOLE SODIUM [Concomitant]
     Active Substance: PANTOPRAZOLE SODIUM
  21. CHLORMADINONE ACETATE [Concomitant]
     Active Substance: CHLORMADINONE ACETATE
  22. RAMIPRIL [Concomitant]
     Active Substance: RAMIPRIL
  23. AMLODIPINE BESYLATE [Concomitant]
     Active Substance: AMLODIPINE BESYLATE
  24. AMLODIPINE BESYLATE [Concomitant]
     Active Substance: AMLODIPINE BESYLATE
  25. AMLODIPINE BESYLATE [Concomitant]
     Active Substance: AMLODIPINE BESYLATE
  26. LEVOTHYROXINE [Concomitant]
     Active Substance: LEVOTHYROXINE\LEVOTHYROXINE SODIUM
  27. PROMETHAZINE [Concomitant]
     Active Substance: PROMETHAZINE HYDROCHLORIDE
  28. ZOPICLONE [Concomitant]
     Active Substance: ZOPICLONE
  29. IBUPROFEN [Concomitant]
     Active Substance: IBUPROFEN
  30. IBUPROFEN [Concomitant]
     Active Substance: IBUPROFEN
  31. GABAPENTIN [Concomitant]
     Active Substance: GABAPENTIN
  32. GABAPENTIN [Concomitant]
     Active Substance: GABAPENTIN
  33. PROPIVERINE HYDROCHLORIDE [Concomitant]
     Active Substance: PROPIVERINE HYDROCHLORIDE
  34. ACETAMINOPHEN [Concomitant]
     Active Substance: ACETAMINOPHEN
  35. VERBORIL (AUSTRIA) [Concomitant]
  36. KESIMPTA [Concomitant]
     Active Substance: OFATUMUMAB
     Dates: start: 20220822

REACTIONS (33)
  - Listless [Recovered/Resolved]
  - Optic neuritis [Not Recovered/Not Resolved]
  - Procedural headache [Recovered/Resolved]
  - CSF volume decreased [Recovered/Resolved]
  - Fatigue [Recovered/Resolved]
  - Malaise [Recovered/Resolved]
  - Breast disorder [Recovered/Resolved]
  - Epicondylitis [Recovered/Resolved]
  - General physical health deterioration [Recovering/Resolving]
  - Gait disturbance [Not Recovered/Not Resolved]
  - Depression [Recovered/Resolved]
  - Emotional disorder [Recovered/Resolved]
  - Laryngeal oedema [Recovered/Resolved]
  - Cough [Recovered/Resolved]
  - Osteoarthritis [Not Recovered/Not Resolved]
  - Blood pressure increased [Recovered/Resolved]
  - Hunger [Recovered/Resolved]
  - Pain [Recovered/Resolved]
  - Thrombosis [Recovered/Resolved]
  - Osteitis [Recovered/Resolved]
  - Complex regional pain syndrome [Recovered/Resolved]
  - COVID-19 [Recovered/Resolved]
  - Visual impairment [Not Recovered/Not Resolved]
  - SARS-CoV-2 antibody test negative [Recovered/Resolved]
  - Headache [Unknown]
  - Initial insomnia [Not Recovered/Not Resolved]
  - Insomnia [Not Recovered/Not Resolved]
  - Blood immunoglobulin G decreased [Not Recovered/Not Resolved]
  - Blood immunoglobulin M decreased [Not Recovered/Not Resolved]
  - Off label use [Unknown]
  - Stress [Recovered/Resolved]
  - Arthralgia [Not Recovered/Not Resolved]
  - Joint swelling [Recovered/Resolved]

NARRATIVE: CASE EVENT DATE: 20190114
